FAERS Safety Report 17563974 (Version 1)
Quarter: 2020Q1

REPORT INFORMATION
  Report Type: Report from Study
  Country: CO (occurrence: CO)
  Receive Date: 20200320
  Receipt Date: 20200320
  Transmission Date: 20200409
  Serious: Yes (Other)
  Sender: FDA-Public Use
  Company Number: CO-ROCHE-1343780

PATIENT
  Age: 84 Year
  Sex: Female

DRUGS (1)
  1. TRASTUZUMAB. [Suspect]
     Active Substance: TRASTUZUMAB
     Indication: BREAST CANCER
     Route: 042
     Dates: start: 20120906

REACTIONS (2)
  - Venous occlusion [Unknown]
  - Varicose ulceration [Recovering/Resolving]

NARRATIVE: CASE EVENT DATE: 20140124
